FAERS Safety Report 20114164 (Version 1)
Quarter: 2021Q4

REPORT INFORMATION
  Report Type: Report from Study
  Country: ES (occurrence: ES)
  Receive Date: 20211125
  Receipt Date: 20211125
  Transmission Date: 20220303
  Serious: Yes (Death, Other)
  Sender: FDA-Public Use
  Company Number: ES-TEVA-2021-ES-1979949

PATIENT
  Age: 63 Year
  Sex: Female

DRUGS (6)
  1. MYCOPHENOLATE MOFETIL [Suspect]
     Active Substance: MYCOPHENOLATE MOFETIL
     Indication: Bone marrow conditioning regimen
     Route: 065
  2. FLUDARABINE [Suspect]
     Active Substance: FLUDARABINE PHOSPHATE
     Indication: Bone marrow conditioning regimen
     Dosage: SCHEDULED TO RECEIVE ON DAYS -6 TO -3
     Route: 065
  3. TACROLIMUS [Suspect]
     Active Substance: TACROLIMUS
     Indication: Bone marrow conditioning regimen
     Dosage: .06 MG/KG DAILY;
     Route: 065
  4. RITUXIMAB [Suspect]
     Active Substance: RITUXIMAB
     Indication: Bone marrow conditioning regimen
     Dosage: THREE DOSES ADMINISTERED WEEKLY STARTING FROM DAY -35
     Route: 065
  5. BUSULFAN [Suspect]
     Active Substance: BUSULFAN
     Indication: Bone marrow conditioning regimen
     Dosage: 3.2 MG/KG DAILY; SCHEDULED TO RECEIVE ON DAYS -6 TO -3
     Route: 042
  6. Immunoglobulin [Concomitant]
     Indication: Bone marrow conditioning regimen
     Dosage: .4 MG/KG DAILY;
     Route: 042

REACTIONS (2)
  - Bacteraemia [Fatal]
  - Septic shock [Fatal]
